FAERS Safety Report 22123308 (Version 1)
Quarter: 2023Q1

REPORT INFORMATION
  Report Type: Report from Study
  Country: EG (occurrence: EG)
  Receive Date: 20230322
  Receipt Date: 20230322
  Transmission Date: 20230418
  Serious: Yes (Other)
  Sender: FDA-Public Use
  Company Number: EG-002147023-NVSC2023EG063752

PATIENT
  Age: 34 Year
  Sex: Male

DRUGS (3)
  1. LEQVIO [Suspect]
     Active Substance: INCLISIRAN SODIUM
     Indication: Hypercholesterolaemia
     Dosage: 284 MG (ONE DOSE EVERY 6 MONTHS)
     Route: 058
     Dates: start: 20220628
  2. URSO [Concomitant]
     Active Substance: URSODIOL
     Indication: Hepatic enzyme increased
     Dosage: 2 DOSAGE FORM, QD (STARTED ONE MONTH AGO)
     Route: 048
  3. OMEGA 3 [Concomitant]
     Active Substance: CAPSAICIN
     Indication: Vitamin supplementation
     Dosage: 1 DOSAGE FORM, QD (STARTED 4 MONTHS AGO)
     Route: 048

REACTIONS (3)
  - Hepatic enzyme increased [Unknown]
  - Blood cholesterol increased [Unknown]
  - Off label use [Not Recovered/Not Resolved]

NARRATIVE: CASE EVENT DATE: 20220628
